FAERS Safety Report 9211036 (Version 1)
Quarter: 2013Q2

REPORT INFORMATION
  Report Type: Report from Study
  Country: US (occurrence: US)
  Receive Date: 20130404
  Receipt Date: 20130404
  Transmission Date: 20140414
  Serious: Yes (Other)
  Sender: FDA-Public Use
  Company Number: US-ABBOTT-13P-163-1069510-00

PATIENT
  Age: 59 Year
  Sex: Female
  Weight: 113.5 kg

DRUGS (7)
  1. HUMIRA [Suspect]
     Indication: RHEUMATOID ARTHRITIS
     Route: 058
     Dates: start: 201102, end: 201110
  2. HUMIRA [Suspect]
     Route: 058
     Dates: start: 201111
  3. UNKNOWN MEDICATION [Concomitant]
     Indication: HYPERTENSION
  4. ZYRTEC [Concomitant]
     Indication: HYPERSENSITIVITY
  5. SIMVASTATIN [Concomitant]
     Indication: BLOOD CHOLESTEROL INCREASED
  6. PAXIL [Concomitant]
     Indication: STRESS
  7. VITAMIN D [Concomitant]
     Indication: RHEUMATOID ARTHRITIS

REACTIONS (3)
  - Device breakage [Recovered/Resolved]
  - Gait disturbance [Recovered/Resolved]
  - Pain in extremity [Recovered/Resolved]
